FAERS Safety Report 14376919 (Version 1)
Quarter: 2018Q1

REPORT INFORMATION
  Report Type: Spontaneous
  Country: US (occurrence: US)
  Receive Date: 20180111
  Receipt Date: 20180111
  Transmission Date: 20180509
  Serious: No
  Sender: FDA-Public Use
  Company Number: US-DRREDDYS-USA/USA/17/0087902

PATIENT
  Age: 64 Year
  Sex: Female

DRUGS (2)
  1. HABITROL [Suspect]
     Active Substance: NICOTINE
     Indication: SMOKING CESSATION THERAPY
     Route: 062
     Dates: end: 20170305
  2. OXYCODONE [Concomitant]
     Active Substance: OXYCODONE
     Indication: PAIN
     Route: 065

REACTIONS (7)
  - Ageusia [Not Recovered/Not Resolved]
  - Underdose [Unknown]
  - Drug dose omission [Unknown]
  - Overdose [Unknown]
  - Nicotine dependence [Not Recovered/Not Resolved]
  - Treatment noncompliance [Unknown]
  - Product quality issue [Unknown]

NARRATIVE: CASE EVENT DATE: 20170311
